FAERS Safety Report 7676859-1 (Version None)
Quarter: 2011Q3

REPORT INFORMATION
  Report Type: 
  Country: None (occurrence: None)
  Receive Date: 20110811
  Receipt Date: 20110808
  Transmission Date: 20111222
  Serious: Yes (Death, Life-Threatening)
  Sender: FDA-Public Use
  Company Number: DE-SANOFI-AVENTIS-2011SA050467

PATIENT
  Age: 89 Year
  Sex: Female

DRUGS (8)
  1. LISINOPRIL [Concomitant]
     Route: 048
     Dates: start: 20050101, end: 20050310
  2. SULPIRIDE [Suspect]
     Route: 048
     Dates: start: 20041201, end: 20050218
  3. OXAZEPAM [Suspect]
     Route: 048
     Dates: start: 20050101, end: 20050217
  4. HYDROCHLOROTHIAZIDE [Concomitant]
     Route: 048
     Dates: start: 20050101, end: 20050310
  5. ZOLPIDEM [Suspect]
     Route: 048
     Dates: start: 20041101, end: 20050218
  6. PROTHIPENDYL [Suspect]
     Route: 048
     Dates: start: 20050218, end: 20050310
  7. MIRTAZAPINE [Suspect]
     Route: 048
     Dates: start: 20050218, end: 20050310
  8. OXAZEPAM [Suspect]
     Route: 048
     Dates: start: 20050218, end: 20050310

REACTIONS (2)
  - RESPIRATORY ARREST [None]
  - SUDDEN DEATH [None]
